FAERS Safety Report 7247267-2 (Version None)
Quarter: 2011Q1

REPORT INFORMATION
  Report Type: 
  Country: None (occurrence: None)
  Receive Date: 20110127
  Receipt Date: 20110125
  Transmission Date: 20110831
  Serious: Yes (Hospitalization)
  Sender: FDA-Public Use
  Company Number: A0815393A

PATIENT
  Age: 46 Year
  Sex: Male

DRUGS (2)
  1. NO CONCURRENT MEDICATIONS [Concomitant]
  2. PROMACTA [Suspect]
     Dosage: 25MG PER DAY
     Route: 048
     Dates: start: 20090717, end: 20100803

REACTIONS (4)
  - SPLENECTOMY [None]
  - PLATELET COUNT DECREASED [None]
  - HYPERHIDROSIS [None]
  - PRESYNCOPE [None]
